FAERS Safety Report 9280146 (Version 1)
Quarter: 2013Q2

REPORT INFORMATION
  Report Type: Spontaneous
  Country: US (occurrence: None)
  Receive Date: 20130507
  Receipt Date: 20130507
  Transmission Date: 20140414
  Serious: Yes (Disabling)
  Sender: FDA-Public Use
  Company Number: None

PATIENT
  Sex: Female
  Weight: 48.72 kg

DRUGS (1)
  1. CARVEDILOL [Suspect]
     Indication: HYPERTENSION
     Dosage: 1 TAB
     Dates: start: 200702, end: 201303

REACTIONS (6)
  - Myalgia [None]
  - Pain in extremity [None]
  - Ejection fraction decreased [None]
  - Fatigue [None]
  - Fatigue [None]
  - Pruritus [None]
